FAERS Safety Report 16920568 (Version 1)
Quarter: 2019Q4

REPORT INFORMATION
  Report Type: Spontaneous
  Country: GB (occurrence: GB)
  Receive Date: 20191015
  Receipt Date: 20191015
  Transmission Date: 20200122
  Serious: Yes (Hospitalization)
  Sender: FDA-Public Use
  Company Number: GB-MYLANLABS-2019M1096687

PATIENT
  Age: 85 Year
  Sex: Female

DRUGS (6)
  1. MIRTAZAPINE. [Concomitant]
     Active Substance: MIRTAZAPINE
     Dosage: 15 MILLIGRAM, QD (AT NIGHT)
  2. RAMIPRIL. [Concomitant]
     Active Substance: RAMIPRIL
     Dosage: 2.5 MILLIGRAM, QD
  3. SALBUTAMOL [Concomitant]
     Active Substance: ALBUTEROL
     Dosage: 800 MICROGRAM, QD, PUFF (INHALER)
  4. BACLOFEN. [Suspect]
     Active Substance: BACLOFEN
     Indication: PRODUCT USED FOR UNKNOWN INDICATION
     Dosage: 10 MILLIGRAM, QD
  5. BRALTUS [Concomitant]
     Active Substance: TIOTROPIUM BROMIDE
     Dosage: 10 MICROGRAM, QD
     Route: 055
  6. MORPHINE [Concomitant]
     Active Substance: MORPHINE
     Dosage: 10MG/5ML. 2.5 - 5MLS TO BE TAKEN TID
     Route: 048

REACTIONS (1)
  - Respiratory failure [Recovered/Resolved]
